FAERS Safety Report 16807769 (Version 4)
Quarter: 2020Q1

REPORT INFORMATION
  Report Type: Spontaneous
  Country: FR (occurrence: FR)
  Receive Date: 20190915
  Receipt Date: 20200211
  Transmission Date: 20200409
  Serious: Yes (Other)
  Sender: FDA-Public Use
  Company Number: PHHY2019FR210438

PATIENT
  Age: 23 Year
  Sex: Female
  Weight: 66 kg

DRUGS (7)
  1. FLAGYL [Suspect]
     Active Substance: METRONIDAZOLE\METRONIDAZOLE HYDROCHLORIDE
     Indication: TOOTH DISORDER
     Dosage: 25 DF, QD (125 MG/ 5ML 300 MG 3 INTAKES/DAY)
     Route: 065
     Dates: start: 20190822, end: 20190829
  2. FLAGYL [Suspect]
     Active Substance: METRONIDAZOLE\METRONIDAZOLE HYDROCHLORIDE
     Indication: ORAL INFECTION
  3. FLAGYL [Suspect]
     Active Substance: METRONIDAZOLE\METRONIDAZOLE HYDROCHLORIDE
     Indication: DENTAL DISCOMFORT
  4. AMOXICILLIN. [Suspect]
     Active Substance: AMOXICILLIN
     Indication: TOOTH DISORDER
     Dosage: 1 G, QD
     Route: 048
     Dates: start: 20190822, end: 20190828
  5. AMOXICILLIN. [Suspect]
     Active Substance: AMOXICILLIN
     Indication: ORAL INFECTION
     Dosage: 1 DF, Q12H (1 DF, BID  )
     Route: 048
     Dates: start: 20190822, end: 20190829
  6. FLAGYL [Suspect]
     Active Substance: METRONIDAZOLE\METRONIDAZOLE HYDROCHLORIDE
     Indication: TOOTH INFECTION
     Dosage: UNK (4 MEASURING SPOON, 3 TIMES A DAY)
     Route: 048
     Dates: start: 20190822, end: 20190829
  7. FLAGYL [Suspect]
     Active Substance: METRONIDAZOLE\METRONIDAZOLE HYDROCHLORIDE
     Indication: ANTIFUNGAL TREATMENT

REACTIONS (2)
  - Product contamination microbial [Unknown]
  - Vulvovaginal mycotic infection [Recovered/Resolved]

NARRATIVE: CASE EVENT DATE: 20190824
